FAERS Safety Report 8333930-9 (Version None)
Quarter: 2012Q2

REPORT INFORMATION
  Report Type: 
  Country: None (occurrence: None)
  Receive Date: 20120503
  Receipt Date: 20110308
  Transmission Date: 20120825
  Serious: No
  Sender: FDA-Public Use
  Company Number: US-TEVA-2011000440

PATIENT
  Sex: Female
  Weight: 72.64 kg

DRUGS (5)
  1. NUVIGIL [Suspect]
     Indication: FIBROMYALGIA
     Dosage: 150 MILLIGRAM;
     Route: 048
     Dates: start: 20110114
  2. LORCET-HD [Suspect]
     Dates: start: 20090101
  3. SINGULAIR [Concomitant]
     Dates: start: 20100101
  4. SYMBICORT [Concomitant]
     Dates: start: 20100101
  5. NAPROXEN [Concomitant]
     Dates: start: 20100801

REACTIONS (5)
  - PAIN [None]
  - CONSTIPATION [None]
  - SLUGGISHNESS [None]
  - ASTHENIA [None]
  - INFLUENZA LIKE ILLNESS [None]
